FAERS Safety Report 10760823 (Version 3)
Quarter: 2015Q2

REPORT INFORMATION
  Report Type: Spontaneous
  Country: US (occurrence: US)
  Receive Date: 20150204
  Receipt Date: 20150521
  Transmission Date: 20150821
  Serious: Yes (Other)
  Sender: FDA-Public Use
  Company Number: US-AMGEN-USASP2015008475

PATIENT
  Age: 63 Year
  Sex: Female
  Weight: 70.75 kg

DRUGS (22)
  1. GLUCOSAMINE CHONDROITIN            /01430901/ [Concomitant]
     Dosage: UNK, QD
     Dates: start: 20150214
  2. METFORMIN [Concomitant]
     Active Substance: METFORMIN HYDROCHLORIDE
     Dosage: 500 UNK, 2 BID
     Dates: start: 20150214
  3. IRON [Concomitant]
     Active Substance: IRON
     Dosage: UNK, QD
     Dates: start: 20150214
  4. KLONOPIN [Concomitant]
     Active Substance: CLONAZEPAM
     Dosage: 0.5 UNK, PRN
     Dates: start: 20150214
  5. TRADJENTA [Concomitant]
     Active Substance: LINAGLIPTIN
     Dosage: UNK, QD
     Dates: start: 20150214
  6. HCQ [Concomitant]
     Active Substance: HYDROXYCHLOROQUINE SULFATE
     Dosage: 200 UNK, QD
     Dates: start: 20150214
  7. SIMCOR                             /00848101/ [Concomitant]
     Dosage: 19/500, QD
     Dates: start: 20150214
  8. VITAMIN D3 [Concomitant]
     Active Substance: CHOLECALCIFEROL
     Dosage: 1000 UNK, QD
     Dates: start: 20150214
  9. SULFASALAZINE. [Concomitant]
     Active Substance: SULFASALAZINE
     Dosage: 500 UNK, 2 BID
     Dates: start: 20150214
  10. CALCIUM [Concomitant]
     Active Substance: CALCIUM
     Dosage: 600 UNK, QD
     Dates: start: 20150214
  11. BYSTOLIC [Concomitant]
     Active Substance: NEBIVOLOL HYDROCHLORIDE
     Dosage: 2.5 UNK, QD
     Dates: start: 20150214
  12. METHOTREXATE [Concomitant]
     Active Substance: METHOTREXATE
     Dosage: 2.5 UNK, 4 TIMES/WK
     Dates: start: 20150214
  13. NEURONTIN [Concomitant]
     Active Substance: GABAPENTIN
     Dosage: 300 UNK, BID
     Dates: start: 20150214
  14. ASA [Concomitant]
     Active Substance: ASPIRIN
     Dosage: 325, QD
     Dates: start: 20150214
  15. FOLIC ACID. [Concomitant]
     Active Substance: FOLIC ACID
     Dosage: 800 UNK, QD
     Dates: start: 20150214
  16. GLYCINE. [Concomitant]
     Active Substance: GLYCINE
     Dosage: UNK , QD
     Dates: start: 20150214
  17. ENBREL [Suspect]
     Active Substance: ETANERCEPT
     Indication: RHEUMATOID ARTHRITIS
     Dosage: 50 MG, ONCE EVERY 20 DAYS
     Route: 065
     Dates: start: 20141110, end: 201501
  18. SYNTHROID [Concomitant]
     Active Substance: LEVOTHYROXINE SODIUM
     Dosage: UNK, QD
     Dates: start: 20150214
  19. BIOTIN [Concomitant]
     Active Substance: BIOTIN
     Dosage: UNK, QD
     Dates: start: 20150214
  20. MICARDIS [Concomitant]
     Active Substance: TELMISARTAN
     Dosage: 20, QD
     Dates: start: 20150214
  21. VITAMIN C [Concomitant]
     Active Substance: ASCORBIC ACID
     Dosage: UNK, QD
     Dates: start: 20150214
  22. OSPHENA [Concomitant]
     Active Substance: OSPEMIFENE
     Dosage: 600 UNK, QD
     Dates: start: 20150214

REACTIONS (1)
  - Cardiomyopathy [Unknown]

NARRATIVE: CASE EVENT DATE: 20150124
